FAERS Safety Report 24724174 (Version 3)
Quarter: 2024Q4

REPORT INFORMATION
  Report Type: Report from Study
  Country: US (occurrence: US)
  Receive Date: 20241211
  Receipt Date: 20241230
  Transmission Date: 20250115
  Serious: Yes (Other)
  Sender: ABBVIE
  Company Number: US-ABBVIE-6010081

PATIENT
  Age: 59 Year
  Sex: Male

DRUGS (2)
  1. IMBRUVICA [Suspect]
     Active Substance: IBRUTINIB
     Indication: Chronic lymphocytic leukaemia
     Dosage: 3 CAPSULES PER DAY
     Route: 048
     Dates: start: 20221007
  2. IMBRUVICA [Suspect]
     Active Substance: IBRUTINIB
     Indication: Chronic lymphocytic leukaemia
     Dosage: 2 CAPSULES PER DAY
     Route: 048

REACTIONS (5)
  - Prostate cancer stage IV [Unknown]
  - White blood cell count increased [Unknown]
  - Arthralgia [Recovering/Resolving]
  - Nephrostomy [Unknown]
  - Stoma site infection [Unknown]

NARRATIVE: CASE EVENT DATE: 20240101
